FAERS Safety Report 11588237 (Version 2)
Quarter: 2015Q4

REPORT INFORMATION
  Report Type: Report from Study
  Country: US (occurrence: US)
  Receive Date: 20151002
  Receipt Date: 20151005
  Transmission Date: 20160304
  Serious: No
  Sender: FDA-Public Use
  Company Number: US-ASTRAZENECA-2015SE91916

PATIENT
  Age: 35 Year
  Sex: Female

DRUGS (3)
  1. CLONAZEPAM. [Concomitant]
     Active Substance: CLONAZEPAM
  2. BYETTA [Suspect]
     Active Substance: EXENATIDE
     Indication: TYPE 2 DIABETES MELLITUS
     Route: 065
  3. AMITRIPTYLINE [Concomitant]
     Active Substance: AMITRIPTYLINE
     Indication: RESTLESS LEGS SYNDROME

REACTIONS (5)
  - Drug dose omission [Unknown]
  - Cholelithiasis [Unknown]
  - Blood glucose increased [Unknown]
  - Colitis [Unknown]
  - Reading disorder [Unknown]

NARRATIVE: CASE EVENT DATE: 2011
